FAERS Safety Report 10839056 (Version 1)
Quarter: 2015Q1

REPORT INFORMATION
  Report Type: Spontaneous
  Country: FR (occurrence: FR)
  Receive Date: 20150220
  Receipt Date: 20150220
  Transmission Date: 20150721
  Serious: Yes (Other)
  Sender: FDA-Public Use
  Company Number: FR-ROCHE-1540552

PATIENT
  Age: 86 Year
  Sex: Female
  Weight: 87 kg

DRUGS (3)
  1. MIRCERA [Suspect]
     Active Substance: PEGZEREPOETIN ALFA
     Dosage: INJECTABLE SOLUTION IN PRE-FILLED SYRINGE100 MCG/0.3 ML
     Route: 058
     Dates: start: 201101
  2. MIRCERA [Suspect]
     Active Substance: PEGZEREPOETIN ALFA
     Indication: NEPHROGENIC ANAEMIA
     Dosage: NOVEMBER TO DEC-2010 AT THE DOSE OF 50MCG EVERY TWO WEEKS
     Route: 058
     Dates: start: 201011, end: 201012
  3. MIRCERA [Suspect]
     Active Substance: PEGZEREPOETIN ALFA
     Route: 058
     Dates: end: 20110301

REACTIONS (2)
  - Thrombophlebitis [Recovering/Resolving]
  - Pulmonary embolism [Recovering/Resolving]

NARRATIVE: CASE EVENT DATE: 201103
